FAERS Safety Report 24767177 (Version 1)
Quarter: 2024Q4

REPORT INFORMATION
  Report Type: Spontaneous
  Country: AT (occurrence: AT)
  Receive Date: 20241223
  Receipt Date: 20241223
  Transmission Date: 20250114
  Serious: Yes (Death, Hospitalization)
  Sender: FRESENIUS KABI
  Company Number: AT-SERVIER-S24005681

PATIENT
  Age: 68 Year
  Sex: Male
  Weight: 70 kg

DRUGS (3)
  1. LEUCOVORIN [Suspect]
     Active Substance: LEUCOVORIN\LEUCOVORIN CALCIUM
     Indication: Cholangiocarcinoma
     Dosage: 400 MG/M2, EVERY 2 WEEKS
     Route: 042
  2. IRINOTECAN HYDROCHLORIDE [Suspect]
     Active Substance: IRINOTECAN HYDROCHLORIDE
     Indication: Cholangiocarcinoma
     Dosage: 70 MG/M2, EVERY 2 WEEKS?FOA: SOLUTION FOR INFUSION
     Route: 042
     Dates: end: 202405
  3. FLUOROURACIL [Suspect]
     Active Substance: FLUOROURACIL
     Indication: Cholangiocarcinoma
     Dosage: 2400 MG/M2, EVERY 2 WEEKS?FOA: UNKNOWN
     Route: 042

REACTIONS (5)
  - Gastroenteritis Escherichia coli [Fatal]
  - Pneumonia [Fatal]
  - Off label use [Recovered/Resolved]
  - Disease progression [Unknown]
  - General physical health deterioration [Unknown]

NARRATIVE: CASE EVENT DATE: 20240101
